FAERS Safety Report 5045331-X (Version None)
Quarter: 2006Q3

REPORT INFORMATION
  Report Type: 
  Country: None (occurrence: None)
  Receive Date: 20060707
  Receipt Date: 20051108
  Transmission Date: 20061208
  Serious: Yes (Other)
  Sender: FDA-Public Use
  Company Number: US-GLAXOSMITHKLINE-A0581453A

PATIENT
  Sex: Female

DRUGS (6)
  1. LOTRONEX [Suspect]
     Indication: IRRITABLE BOWEL SYNDROME
     Dosage: 1MG PER DAY
     Route: 048
     Dates: start: 20030101
  2. ZETIA [Concomitant]
  3. MAXALT [Concomitant]
  4. ADVAIR DISKUS 100/50 [Concomitant]
  5. NASACORT [Concomitant]
  6. POTASSIUM [Concomitant]

REACTIONS (2)
  - BONE PAIN [None]
  - HEPATIC ENZYME INCREASED [None]
